FAERS Safety Report 5062202-3 (Version None)
Quarter: 2006Q3

REPORT INFORMATION
  Report Type: 
  Country: None (occurrence: None)
  Receive Date: 20060726
  Receipt Date: 20060718
  Transmission Date: 20061208
  Serious: Yes (Hospitalization)
  Sender: FDA-Public Use
  Company Number: US-MERCK-0607USA03897

PATIENT
  Age: 68 Year
  Sex: Female

DRUGS (6)
  1. FOSAMAX [Suspect]
     Indication: OSTEOPOROSIS
     Route: 048
     Dates: start: 20020315, end: 20051201
  2. MYSOLINE [Concomitant]
     Route: 065
  3. NEURONTIN [Concomitant]
     Route: 065
  4. COUMADIN [Concomitant]
     Route: 065
  5. IMURAN [Concomitant]
     Route: 065
  6. PLAQUENIL [Concomitant]
     Route: 065

REACTIONS (5)
  - FALL [None]
  - HAND FRACTURE [None]
  - PELVIC FRACTURE [None]
  - ROAD TRAFFIC ACCIDENT [None]
  - UPPER LIMB FRACTURE [None]
